FAERS Safety Report 8762343 (Version 2)
Quarter: 2012Q4

REPORT INFORMATION
  Report Type: 
  Country: US (occurrence: US)
  Receive Date: 20120830
  Receipt Date: 20120905
  Transmission Date: 20130627
  Serious: Yes (Other)
  Sender: FDA-Public Use
  Company Number: US-PFIZER INC-2012212241

PATIENT
  Age: 67 Year
  Sex: Female
  Weight: 68 kg

DRUGS (1)
  1. PROTONIX [Suspect]
     Indication: ULCER
     Dosage: 40 mg, once a day
     Route: 048
     Dates: start: 2007

REACTIONS (1)
  - Bladder disorder [Unknown]
